FAERS Safety Report 17915476 (Version 1)
Quarter: 2020Q2

REPORT INFORMATION
  Report Type: Spontaneous
  Country: FI (occurrence: FI)
  Receive Date: 20200619
  Receipt Date: 20200619
  Transmission Date: 20200714
  Serious: Yes (Hospitalization, Other)
  Sender: FDA-Public Use
  Company Number: FI-GLAXOSMITHKLINE-FI2020GSK098471

PATIENT
  Age: 29 Year
  Sex: Female
  Weight: 63 kg

DRUGS (4)
  1. LAMOTRIGINE. [Suspect]
     Active Substance: LAMOTRIGINE
     Indication: EPILEPSY
     Dosage: 150 MG TWO TIMES PER DAY
  2. LEVETIRACETAM. [Suspect]
     Active Substance: LEVETIRACETAM
     Indication: EPILEPSY
     Dosage: 500 MG TWO TIMES PER DAY
  3. PREDNISOLONE. [Suspect]
     Active Substance: PREDNISOLONE
     Indication: LARYNGEAL OEDEMA
     Dosage: 1.2 MG/KG
     Route: 042
  4. PREDNISOLONE. [Suspect]
     Active Substance: PREDNISOLONE
     Dosage: 60 MG/DAYS/ DOSE REDUCTION FOR 14 DAYS
     Route: 048

REACTIONS (10)
  - Laryngeal oedema [Recovered/Resolved]
  - Upper respiratory tract infection [Recovered/Resolved]
  - Dysphonia [Recovered/Resolved]
  - Tonsillar hypertrophy [Recovered/Resolved]
  - Disease recurrence [Recovered/Resolved]
  - Dysphagia [Recovered/Resolved]
  - Therapy non-responder [Unknown]
  - Hypogammaglobulinaemia [Recovered/Resolved]
  - Dyspnoea [Recovered/Resolved]
  - Obstructive airways disorder [Recovered/Resolved]
